FAERS Safety Report 22312102 (Version 1)
Quarter: 2023Q2

REPORT INFORMATION
  Report Type: Spontaneous
  Country: US (occurrence: US)
  Receive Date: 20230512
  Receipt Date: 20230512
  Transmission Date: 20230722
  Serious: No
  Sender: FDA-Public Use
  Company Number: US-LEO Pharma-351842

PATIENT
  Age: 55 Year
  Sex: Female

DRUGS (12)
  1. ADBRY [Suspect]
     Active Substance: TRALOKINUMAB-LDRM
     Indication: Dermatitis atopic
     Dosage: 4 INJECTIONS FOR THE INITIAL DOSE THEN AT 2 INJECTIONS EVERY TWO WEEKS
     Dates: start: 20230502
  2. ADBRY [Suspect]
     Active Substance: TRALOKINUMAB-LDRM
     Indication: Dermatitis atopic
     Dosage: 4 INJECTIONS FOR THE INITIAL DOSE THEN AT 2 INJECTIONS EVERY TWO WEEKS
     Dates: start: 20230502
  3. ADBRY [Suspect]
     Active Substance: TRALOKINUMAB-LDRM
     Indication: Dermatitis atopic
     Dosage: 4 INJECTIONS FOR THE INITIAL DOSE THEN AT 2 INJECTIONS EVERY TWO WEEKS
     Dates: start: 20230502
  4. ADBRY [Suspect]
     Active Substance: TRALOKINUMAB-LDRM
     Indication: Dermatitis atopic
     Dosage: 4 INJECTIONS FOR THE INITIAL DOSE THEN AT 2 INJECTIONS EVERY TWO WEEKS
     Dates: start: 20230502
  5. ADBRY [Suspect]
     Active Substance: TRALOKINUMAB-LDRM
     Indication: Dermatitis atopic
     Dosage: 4 INJECTIONS FOR THE INITIAL DOSE THEN AT 2 INJECTIONS EVERY TWO WEEKS (STARTED ABOUT 4 MONTHS)
  6. ADBRY [Suspect]
     Active Substance: TRALOKINUMAB-LDRM
     Indication: Dermatitis atopic
     Dosage: 4 INJECTIONS FOR THE INITIAL DOSE THEN AT 2 INJECTIONS EVERY TWO WEEKS (STARTED ABOUT 4 MONTHS)
  7. ADBRY [Suspect]
     Active Substance: TRALOKINUMAB-LDRM
     Indication: Dermatitis atopic
     Dosage: 4 INJECTIONS FOR THE INITIAL DOSE THEN AT 2 INJECTIONS EVERY TWO WEEKS (STARTED ABOUT 4 MONTHS)
  8. ADBRY [Suspect]
     Active Substance: TRALOKINUMAB-LDRM
     Indication: Dermatitis atopic
     Dosage: 4 INJECTIONS FOR THE INITIAL DOSE THEN AT 2 INJECTIONS EVERY TWO WEEKS (STARTED ABOUT 4 MONTHS)
  9. METFORMIN [Concomitant]
     Active Substance: METFORMIN HYDROCHLORIDE
     Indication: Glucose tolerance impaired
  10. TRINTELLIX [Concomitant]
     Active Substance: VORTIOXETINE HYDROBROMIDE
     Indication: Depression
  11. METOPROLOL [Concomitant]
     Active Substance: METOPROLOL
     Indication: Blood pressure measurement
     Dosage: 25 MG 1 TABLET TWICE A DAY
  12. HYDROCHLOROTHIAZIDE\LOSARTAN [Concomitant]
     Active Substance: HYDROCHLOROTHIAZIDE\LOSARTAN
     Indication: Blood pressure measurement
     Dosage: DOSAGE : 100/25 1 TABLET ONCE A DAY

REACTIONS (2)
  - Injection site erythema [Recovered/Resolved]
  - Injection site pruritus [Recovered/Resolved]

NARRATIVE: CASE EVENT DATE: 20230502
